FAERS Safety Report 7427719-2 (Version None)
Quarter: 2011Q1

REPORT INFORMATION
  Report Type: 
  Country: None (occurrence: None)
  Receive Date: 20110302
  Receipt Date: 20110107
  Transmission Date: 20110831
  Serious: No
  Sender: FDA-Public Use
  Company Number: 025121

PATIENT
  Sex: Female
  Weight: 48.5349 kg

DRUGS (3)
  1. CIMZIA [Suspect]
     Indication: CROHN'S DISEASE
     Dosage: 400 MG 1X/MONTH SUBCUTANEOUS
     Route: 058
     Dates: start: 20100901
  2. PREMARIN [Concomitant]
  3. SYNTHROID [Concomitant]

REACTIONS (5)
  - VIRAL UPPER RESPIRATORY TRACT INFECTION [None]
  - URTICARIA [None]
  - URINARY TRACT INFECTION [None]
  - FUNGAL SKIN INFECTION [None]
  - RASH [None]
